FAERS Safety Report 6739437-4 (Version None)
Quarter: 2010Q2

REPORT INFORMATION
  Report Type: 
  Country: None (occurrence: None)
  Receive Date: 20100525
  Receipt Date: 20100517
  Transmission Date: 20101027
  Serious: Yes (Hospitalization)
  Sender: FDA-Public Use
  Company Number: GXKR2010US05095

PATIENT
  Age: 49 Year
  Sex: Female

DRUGS (8)
  1. AZITHROMYCIN (NGX) [Suspect]
     Indication: BRONCHITIS
     Route: 065
  2. RED YEAST RICE OTHER NUTRIENTS [Interacting]
     Dosage: 600 MG, BID
     Route: 065
  3. GARLIC [Concomitant]
  4. COENZYME Q10 [Concomitant]
  5. BROMELAINS [Concomitant]
  6. GINGER [Concomitant]
  7. VINEGAR OTHER NUTRIENTS [Concomitant]
  8. VITAMIN B NOS [Concomitant]

REACTIONS (5)
  - CHROMATURIA [None]
  - DRUG INTERACTION [None]
  - MYALGIA [None]
  - PAIN [None]
  - RHABDOMYOLYSIS [None]
